FAERS Safety Report 24694499 (Version 1)
Quarter: 2024Q4

REPORT INFORMATION
  Report Type: Spontaneous
  Country: IT (occurrence: IT)
  Receive Date: 20241204
  Receipt Date: 20241204
  Transmission Date: 20250115
  Serious: Yes (Other)
  Sender: JOHNSON AND JOHNSON
  Company Number: None

PATIENT
  Age: 36 Year
  Sex: Male

DRUGS (2)
  1. REMICADE [Suspect]
     Active Substance: INFLIXIMAB
     Indication: Crohn^s disease
     Dosage: 350 MG EVERY 8 WEEKS
     Route: 042
     Dates: start: 2011, end: 202401
  2. INFLIXIMAB [Suspect]
     Active Substance: INFLIXIMAB
     Indication: Crohn^s disease
     Dosage: 350 EVERY 8 WEEKS
     Route: 042
     Dates: start: 20240303

REACTIONS (2)
  - Sjogren^s syndrome [Not Recovered/Not Resolved]
  - Hypocomplementaemia [Unknown]

NARRATIVE: CASE EVENT DATE: 20240101
